FAERS Safety Report 4909028-6 (Version None)
Quarter: 2006Q1

REPORT INFORMATION
  Report Type: 
  Country: None (occurrence: None)
  Receive Date: 20060209
  Receipt Date: 20060209
  Transmission Date: 20060701
  Serious: Yes (Other)
  Sender: FDA-Public Use
  Company Number: None

PATIENT
  Age: 9 Year
  Sex: Female
  Weight: 28.123 kg

DRUGS (5)
  1. MIRTAZAPINE [Suspect]
     Indication: ATTENTION DEFICIT/HYPERACTIVITY DISORDER
     Dosage: 1 AT BEDTIME NIGHTLY PO
     Route: 048
  2. MIRTAZAPINE [Suspect]
     Indication: SLEEP DISORDER
     Dosage: 1 AT BEDTIME NIGHTLY PO
     Route: 048
  3. CLONIDINE [Suspect]
     Indication: ATTENTION DEFICIT/HYPERACTIVITY DISORDER
     Dosage: 1.5 AT BEDTIME NIGHTLY PO
     Route: 048
  4. CLONIDINE [Suspect]
     Indication: SLEEP DISORDER
     Dosage: 1.5 AT BEDTIME NIGHTLY PO
     Route: 048
  5. CONCERTA [Concomitant]

REACTIONS (8)
  - ABNORMAL BEHAVIOUR [None]
  - AGGRESSION [None]
  - ANGER [None]
  - CONDITION AGGRAVATED [None]
  - FEELINGS OF WORTHLESSNESS [None]
  - HOSTILITY [None]
  - PSYCHOTIC DISORDER [None]
  - SUICIDAL IDEATION [None]
